FAERS Safety Report 17200575 (Version 5)
Quarter: 2021Q4

REPORT INFORMATION
  Report Type: Report from Study
  Country: JP (occurrence: JP)
  Receive Date: 20191226
  Receipt Date: 20211013
  Transmission Date: 20220304
  Serious: Yes (Life-Threatening, Hospitalization, Disabling, Other)
  Sender: FDA-Public Use
  Company Number: JP-AUROBINDO-AUR-APL-2019-107176

PATIENT
  Age: 71 Year
  Sex: Female
  Weight: 53.2 kg

DRUGS (31)
  1. FOLOTYN [Suspect]
     Active Substance: PRALATREXATE
     Indication: Angioimmunoblastic T-cell lymphoma stage III
     Dosage: 30 MILLIGRAM/SQ. METER
     Route: 042
     Dates: start: 20190910, end: 20190910
  2. FOLOTYN [Suspect]
     Active Substance: PRALATREXATE
     Dosage: 30 MILLIGRAM/SQ. METER
     Route: 042
     Dates: start: 20191001
  3. FOLOTYN [Suspect]
     Active Substance: PRALATREXATE
     Dosage: 30 MILLIGRAM/SQ. METER
     Route: 042
     Dates: start: 20191008
  4. FOLOTYN [Suspect]
     Active Substance: PRALATREXATE
     Dosage: 30 MILLIGRAM/SQ. METER
     Route: 042
     Dates: start: 20191015
  5. FOLOTYN [Suspect]
     Active Substance: PRALATREXATE
     Dosage: 30 MILLIGRAM/SQ. METER
     Route: 042
     Dates: start: 20191029
  6. FOLOTYN [Suspect]
     Active Substance: PRALATREXATE
     Dosage: 30 MILLIGRAM/SQ. METER
     Route: 042
     Dates: start: 20191015
  7. FOLOTYN [Suspect]
     Active Substance: PRALATREXATE
     Dosage: 30 MILLIGRAM/SQ. METER
     Route: 042
     Dates: start: 20191105
  8. FOLOTYN [Suspect]
     Active Substance: PRALATREXATE
     Dosage: 30 MILLIGRAM/SQ. METER
     Route: 042
     Dates: start: 20191112
  9. FOLOTYN [Suspect]
     Active Substance: PRALATREXATE
     Dosage: 30 MILLIGRAM/SQ. METER
     Route: 042
     Dates: start: 20191119
  10. FOLOTYN [Suspect]
     Active Substance: PRALATREXATE
     Dosage: 30 MILLIGRAM/SQ. METER
     Route: 042
     Dates: start: 20191126, end: 20191126
  11. FOLOTYN [Suspect]
     Active Substance: PRALATREXATE
     Dosage: 30 MILLIGRAM/SQ. METER
     Route: 042
     Dates: start: 20191210, end: 20191217
  12. FOLOTYN [Suspect]
     Active Substance: PRALATREXATE
     Dosage: 30 MILLIGRAM/SQ. METER
     Route: 042
     Dates: start: 20200302, end: 20200309
  13. FOLOTYN [Suspect]
     Active Substance: PRALATREXATE
     Dosage: 30 MILLIGRAM/SQ. METER
     Route: 042
     Dates: start: 20200309, end: 20200316
  14. GANCICLOVIR [Suspect]
     Active Substance: GANCICLOVIR
     Indication: Angioimmunoblastic T-cell lymphoma stage III
     Dosage: UNK
     Route: 065
     Dates: start: 20191224, end: 20200206
  15. FILGRASTIM [Suspect]
     Active Substance: FILGRASTIM
     Indication: Neutrophil count decreased
     Dosage: UNK
     Route: 065
     Dates: start: 20191224
  16. FILGRASTIM [Suspect]
     Active Substance: FILGRASTIM
     Dosage: UNK
     Route: 065
     Dates: start: 20191225, end: 20191230
  17. FILGRASTIM [Suspect]
     Active Substance: FILGRASTIM
     Dosage: UNK
     Route: 065
     Dates: start: 20200111, end: 20200115
  18. FOLIC ACID [Concomitant]
     Active Substance: FOLIC ACID
     Indication: Prophylaxis
     Dosage: UNK
     Route: 048
  19. VITAMIN B12 [Concomitant]
     Active Substance: CYANOCOBALAMIN
     Indication: Prophylaxis
     Dosage: UNK
     Route: 030
  20. WARFARIN [Concomitant]
     Active Substance: WARFARIN
     Indication: Angioimmunoblastic T-cell lymphoma stage III
     Dosage: UNK
     Route: 065
  21. ACYCLOVIR [Concomitant]
     Active Substance: ACYCLOVIR
     Indication: Angioimmunoblastic T-cell lymphoma stage III
     Dosage: UNK
     Route: 065
  22. AZOSEMIDE [Concomitant]
     Active Substance: AZOSEMIDE
     Indication: Angioimmunoblastic T-cell lymphoma stage III
     Dosage: UNK
     Route: 065
  23. ITRACONAZOLE [Concomitant]
     Active Substance: ITRACONAZOLE
     Indication: Angioimmunoblastic T-cell lymphoma stage III
     Dosage: UNK
     Route: 065
  24. EPINASTINE. [Concomitant]
     Active Substance: EPINASTINE HYDROCHLORIDE
     Indication: Angioimmunoblastic T-cell lymphoma stage III
     Dosage: UNK
     Route: 065
  25. SENNOSIDES [Concomitant]
     Active Substance: SENNOSIDES
     Indication: Angioimmunoblastic T-cell lymphoma stage III
     Dosage: UNK
     Route: 065
  26. SULFAMETHOXAZOLE\TRIMETHOPRIM [Concomitant]
     Active Substance: SULFAMETHOXAZOLE\TRIMETHOPRIM
     Indication: Angioimmunoblastic T-cell lymphoma stage III
     Dosage: UNK
     Route: 065
  27. PREDONINE [Concomitant]
     Active Substance: PREDNISOLONE
     Indication: Angioimmunoblastic T-cell lymphoma stage III
     Dosage: UNK
     Route: 065
  28. POLARAMINE [Concomitant]
     Active Substance: DEXCHLORPHENIRAMINE MALEATE
     Indication: Angioimmunoblastic T-cell lymphoma stage III
     Dosage: UNK
     Route: 065
  29. MAGNESIUM OXIDE [Concomitant]
     Active Substance: MAGNESIUM OXIDE
     Indication: Angioimmunoblastic T-cell lymphoma stage III
     Dosage: UNK
     Route: 065
  30. VALGANCICLOVIR [Concomitant]
     Active Substance: VALGANCICLOVIR
     Indication: Angioimmunoblastic T-cell lymphoma stage III
     Dosage: UNK
     Route: 065
     Dates: start: 20200206, end: 20200318
  31. LEVOFLOXACIN [Concomitant]
     Active Substance: LEVOFLOXACIN
     Indication: Angioimmunoblastic T-cell lymphoma stage III
     Dosage: UNK
     Route: 065
     Dates: start: 20191227, end: 20200101

REACTIONS (12)
  - Cytomegalovirus chorioretinitis [Recovering/Resolving]
  - Neutrophil count decreased [Recovered/Resolved]
  - Febrile neutropenia [Recovered/Resolved]
  - Platelet count decreased [Recovered/Resolved]
  - Hypokalaemia [Recovered/Resolved]
  - Hyperkalaemia [Recovered/Resolved]
  - Tonsillitis [Recovered/Resolved]
  - Stomatitis [Recovered/Resolved]
  - Rash [Recovering/Resolving]
  - C-reactive protein increased [Recovered/Resolved]
  - Cystitis haemorrhagic [Recovered/Resolved]
  - White blood cell count increased [Recovered/Resolved]

NARRATIVE: CASE EVENT DATE: 20190910
